FAERS Safety Report 22603834 (Version 1)
Quarter: 2023Q2

REPORT INFORMATION
  Report Type: Report from Study
  Country: DE (occurrence: DE)
  Receive Date: 20230615
  Receipt Date: 20230615
  Transmission Date: 20230721
  Serious: Yes (Hospitalization, Disabling, Congenital Anomaly, Other)
  Sender: FDA-Public Use
  Company Number: DE-SHIRE-SPV1-2010-01543

PATIENT
  Age: 2 Year
  Sex: Male

DRUGS (9)
  1. IDURSULFASE [Suspect]
     Active Substance: IDURSULFASE
     Indication: Mucopolysaccharidosis II
     Dosage: 0.32 MILLIGRAM/KILOGRAM, 1/WEEK
     Route: 041
     Dates: start: 20100310, end: 20100719
  2. CHOLECALCIFEROL [Concomitant]
     Active Substance: CHOLECALCIFEROL
     Indication: Vitamin D deficiency
     Route: 065
  3. DIAZEPAM [Concomitant]
     Active Substance: DIAZEPAM
     Indication: Seizure
     Dosage: UNK
     Route: 065
     Dates: start: 2011, end: 2011
  4. DIAZEPAM [Concomitant]
     Active Substance: DIAZEPAM
     Indication: Pyrexia
  5. RISPERDAL [Concomitant]
     Active Substance: RISPERIDONE
     Indication: Psychomotor hyperactivity
     Dosage: UNK
     Route: 048
     Dates: start: 2011, end: 20120201
  6. RISPERDAL [Concomitant]
     Active Substance: RISPERIDONE
     Dosage: UNK
     Route: 048
     Dates: start: 20120901
  7. METHYLPHENIDATE HYDROCHLORIDE [Concomitant]
     Active Substance: METHYLPHENIDATE HYDROCHLORIDE
     Indication: Behaviour disorder
     Dosage: UNK
     Route: 048
     Dates: start: 2012, end: 2012
  8. CILOXAN [Concomitant]
     Active Substance: CIPROFLOXACIN HYDROCHLORIDE
     Indication: Otorrhoea
     Dosage: UNK
     Route: 050
     Dates: start: 20120627, end: 20120710
  9. MELATONIN [Concomitant]
     Active Substance: MELATONIN
     Indication: Attention deficit hyperactivity disorder
     Dosage: UNK
     Route: 048
     Dates: start: 20120709, end: 20140701

REACTIONS (1)
  - Carpal tunnel syndrome [Recovered/Resolved]

NARRATIVE: CASE EVENT DATE: 20100622
